FAERS Safety Report 9184447 (Version 1)
Quarter: 2012Q4

REPORT INFORMATION
  Report Type: 
  Country: US (occurrence: US)
  Receive Date: 20121101
  Receipt Date: 20121101
  Transmission Date: 20130627
  Serious: Yes (Other)
  Sender: FDA-Public Use
  Company Number: US-PFIZER INC-2012270791

PATIENT
  Age: 66 Year
  Sex: Male
  Weight: 136 kg

DRUGS (1)
  1. VIAGRA [Suspect]
     Indication: ERECTILE DYSFUNCTION
     Dosage: 25 mg, daily
     Route: 048

REACTIONS (2)
  - Deafness unilateral [Recovering/Resolving]
  - Hearing impaired [Unknown]
